FAERS Safety Report 20119529 (Version 2)
Quarter: 2022Q1

REPORT INFORMATION
  Report Type: Spontaneous
  Country: JP (occurrence: JP)
  Receive Date: 20211126
  Receipt Date: 20220203
  Transmission Date: 20220423
  Serious: Yes (Other)
  Sender: FDA-Public Use
  Company Number: JP-ONO-2021JP022772

PATIENT
  Age: 65 Year
  Sex: Male
  Weight: 76.5 kg

DRUGS (20)
  1. FOSAPREPITANT DIMEGLUMINE [Suspect]
     Active Substance: FOSAPREPITANT DIMEGLUMINE
     Indication: Prophylaxis of nausea and vomiting
     Dosage: 150 MG
     Route: 041
     Dates: start: 20210408, end: 20210430
  2. OPDIVO [Suspect]
     Active Substance: NIVOLUMAB
     Indication: Non-small cell lung cancer recurrent
     Dosage: 360 MG
     Route: 041
     Dates: start: 20210408, end: 20210901
  3. YERVOY [Suspect]
     Active Substance: IPILIMUMAB
     Indication: Non-small cell lung cancer recurrent
     Dosage: 75 MG
     Route: 041
     Dates: start: 20210408, end: 20210811
  4. CARBOPLATIN [Concomitant]
     Active Substance: CARBOPLATIN
     Indication: Non-small cell lung cancer recurrent
     Dosage: 795 MG
     Route: 041
     Dates: start: 20210408, end: 20210430
  5. TAXOL [Concomitant]
     Active Substance: PACLITAXEL
     Indication: Non-small cell lung cancer recurrent
     Dosage: 370 MG
     Route: 041
     Dates: start: 20210408, end: 20210430
  6. DEXAMETHASONE SODIUM PHOSPHATE [Concomitant]
     Active Substance: DEXAMETHASONE SODIUM PHOSPHATE
     Indication: Prophylaxis
     Dosage: 19.8 MG, EVERYDAY
     Route: 042
     Dates: start: 20210408, end: 20210430
  7. GASTER [Concomitant]
     Active Substance: FAMOTIDINE
     Indication: Prophylaxis
     Dosage: 20 MG, EVERYDAY
     Route: 042
     Dates: start: 20210408, end: 20210430
  8. KYTRIL [Concomitant]
     Active Substance: GRANISETRON HYDROCHLORIDE
     Indication: Prophylaxis
     Dosage: 3 MG, EVERYDAY
     Route: 041
     Dates: start: 20210408, end: 20210430
  9. FILGRASTIM [Concomitant]
     Active Substance: FILGRASTIM
     Indication: Prophylaxis
     Dosage: 75 UG, EVERYDAY
     Route: 058
     Dates: start: 20210419, end: 20210515
  10. RESTAMIN [DIPHENHYDRAMINE HYDROCHLORIDE] [Concomitant]
     Indication: Prophylaxis
     Dosage: 50 MG, EVERYDAY
     Route: 048
     Dates: start: 20210408, end: 20210430
  11. ICOSAPENT ETHYL [Concomitant]
     Active Substance: ICOSAPENT ETHYL
     Dosage: 900 MG, Q12H
     Route: 048
     Dates: end: 20210415
  12. ICOSAPENT ETHYL [Concomitant]
     Active Substance: ICOSAPENT ETHYL
     Dosage: 600 MG, Q12H
     Route: 048
     Dates: start: 20210416
  13. XARELTO [Concomitant]
     Active Substance: RIVAROXABAN
     Dosage: 15 MG, EVERYDAY (LAST ADMINISTRATION DATE: 12 APR 2021)
     Route: 048
  14. EDOXABAN TOSYLATE [Concomitant]
     Active Substance: EDOXABAN TOSYLATE
     Dosage: 30 MG, EVERYDAY
     Route: 048
     Dates: start: 20210413
  15. VONOPRAZAN FUMARATE [Concomitant]
     Active Substance: VONOPRAZAN FUMARATE
     Dosage: 10 MG, EVERYDAY
     Route: 048
  16. HERBESSER [Concomitant]
     Active Substance: DILTIAZEM HYDROCHLORIDE
     Dosage: 100 MG, EVERYDAY
     Route: 048
  17. CRESTOR [Concomitant]
     Active Substance: ROSUVASTATIN CALCIUM
     Dosage: 2.5 MG, EVERYDAY
     Route: 048
     Dates: start: 20210405
  18. SHAKUYAKUKANZOTO [Concomitant]
     Active Substance: HERBALS
     Dosage: 2.5 G, Q8H
     Route: 048
     Dates: start: 20210406, end: 20210523
  19. PANTETHINE [Concomitant]
     Active Substance: PANTETHINE
     Dosage: 100 MG, Q8H
     Route: 048
     Dates: start: 20210408
  20. MAGNESIUM OXIDE [Concomitant]
     Active Substance: MAGNESIUM OXIDE
     Dosage: 500 MG, Q8H
     Route: 048
     Dates: start: 20210408

REACTIONS (6)
  - Cutaneous sarcoidosis [Recovered/Resolved]
  - Interstitial lung disease [Recovering/Resolving]
  - Adrenal insufficiency [Not Recovered/Not Resolved]
  - Hypothyroidism [Recovered/Resolved]
  - Hyperthyroidism [Not Recovered/Not Resolved]
  - Rash pruritic [Recovered/Resolved]

NARRATIVE: CASE EVENT DATE: 20210417
